FAERS Safety Report 25529681 (Version 1)
Quarter: 2025Q3

REPORT INFORMATION
  Report Type: Spontaneous
  Country: ZA (occurrence: ZA)
  Receive Date: 20250708
  Receipt Date: 20250708
  Transmission Date: 20251020
  Serious: Yes (Other)
  Sender: CHEPLAPHARM
  Company Number: ZA-ROCHE-10000299415

PATIENT
  Sex: Female

DRUGS (1)
  1. CLONAZEPAM [Suspect]
     Active Substance: CLONAZEPAM
     Indication: Product used for unknown indication
     Route: 048

REACTIONS (6)
  - Dementia [Unknown]
  - Hallucination [Unknown]
  - Psoas abscess [Unknown]
  - Urinary tract infection [Unknown]
  - C-reactive protein increased [Unknown]
  - White blood cell count increased [Unknown]
